FAERS Safety Report 4785292-1 (Version None)
Quarter: 2005Q3

REPORT INFORMATION
  Report Type: 
  Country: None (occurrence: None)
  Receive Date: 20050929
  Receipt Date: 20050915
  Transmission Date: 20060218
  Serious: Yes (Other)
  Sender: FDA-Public Use
  Company Number: FR-2005-019569

PATIENT
  Sex: Male

DRUGS (1)
  1. MAGNEVIST [Suspect]
     Indication: NUCLEAR MAGNETIC RESONANCE IMAGING
     Dosage: UNK, INTRA-ARTICULAR
     Route: 014
     Dates: start: 20050727, end: 20050727

REACTIONS (6)
  - BURNING SENSATION [None]
  - DRUG DISPENSING ERROR [None]
  - DRUG PRESCRIBING ERROR [None]
  - INJECTION SITE PAIN [None]
  - SHOULDER PAIN [None]
  - WRONG DRUG ADMINISTERED [None]
